FAERS Safety Report 5324091-9 (Version None)
Quarter: 2007Q2

REPORT INFORMATION
  Report Type: 
  Country: None (occurrence: None)
  Receive Date: 20070514
  Receipt Date: 20060410
  Transmission Date: 20071010
  Serious: No
  Sender: FDA-Public Use
  Company Number: A0601192A

PATIENT
  Age: 84 Year
  Sex: Female

DRUGS (4)
  1. NABUMETONE [Suspect]
     Dosage: 750MG TWICE PER DAY
     Route: 048
     Dates: start: 20040101
  2. NORVASC [Concomitant]
  3. HYDROCHLOROTHIAZIDE [Concomitant]
  4. LORAZEPAM [Concomitant]

REACTIONS (2)
  - NAUSEA [None]
  - VOMITING [None]
